FAERS Safety Report 13578600 (Version 1)
Quarter: 2017Q2

REPORT INFORMATION
  Report Type: Spontaneous
  Country: US (occurrence: US)
  Receive Date: 20170524
  Receipt Date: 20170524
  Transmission Date: 20170830
  Serious: No
  Sender: FDA-Public Use
  Company Number: US-009507513-1705USA004633

PATIENT
  Age: 39 Year
  Sex: Female
  Weight: 58.96 kg

DRUGS (4)
  1. TRAMADOL HYDROCHLORIDE. [Concomitant]
     Active Substance: TRAMADOL HYDROCHLORIDE
  2. TYLENOL WITH CODEINE #3 (ACETAMINOPHEN (+) CODEINE PHOSPHATE) [Concomitant]
  3. NEXPLANON [Suspect]
     Active Substance: ETONOGESTREL
     Indication: CONTRACEPTION
     Dosage: 1 IMPLANT; EVERY 3 YEARS ON THE LEFT ARM
     Route: 059
     Dates: start: 20150515
  4. ZOLOFT [Concomitant]
     Active Substance: SERTRALINE HYDROCHLORIDE

REACTIONS (3)
  - Amenorrhoea [Recovered/Resolved]
  - Metrorrhagia [Unknown]
  - Mood swings [Unknown]

NARRATIVE: CASE EVENT DATE: 201508
